FAERS Safety Report 8500142-5 (Version None)
Quarter: 2012Q3

REPORT INFORMATION
  Report Type: 
  Country: None (occurrence: None)
  Receive Date: 20120710
  Receipt Date: 20120708
  Transmission Date: 20120928
  Serious: Yes (Hospitalization)
  Sender: FDA-Public Use
  Company Number: EG-PFIZER INC-2012136300

PATIENT
  Age: 60 Year
  Sex: Female

DRUGS (3)
  1. CEFOBID [Suspect]
     Indication: BRONCHITIS
     Route: 030
  2. FORADIL [Concomitant]
  3. BUDESONIDE [Concomitant]

REACTIONS (1)
  - ANAPHYLACTIC REACTION [None]
